FAERS Safety Report 24272738 (Version 1)
Quarter: 2024Q3

REPORT INFORMATION
  Report Type: Spontaneous
  Country: IN (occurrence: IN)
  Receive Date: 20240902
  Receipt Date: 20240902
  Transmission Date: 20241016
  Serious: Yes (Other)
  Sender: STRIDES
  Company Number: IN-STRIDES ARCOLAB LIMITED-2024SP010926

PATIENT

DRUGS (1)
  1. METHOTREXATE [Suspect]
     Active Substance: METHOTREXATE
     Indication: Haematological malignancy
     Dosage: UNK (HIGH-DOSE)
     Route: 065

REACTIONS (4)
  - Cerebrovascular accident [Unknown]
  - Behaviour disorder [Unknown]
  - Ataxia [Unknown]
  - Neurotoxicity [Unknown]
